FAERS Safety Report 8130683-4 (Version None)
Quarter: 2012Q1

REPORT INFORMATION
  Report Type: 
  Country: None (occurrence: None)
  Receive Date: 20120213
  Receipt Date: 20120130
  Transmission Date: 20120608
  Serious: No
  Sender: FDA-Public Use
  Company Number: US-BIOGENIDEC-2012BI003487

PATIENT
  Sex: Female

DRUGS (3)
  1. AMPYRA [Concomitant]
     Indication: MUSCLE SPASTICITY
  2. OXYCODONE HCL [Concomitant]
     Indication: PAIN IN EXTREMITY
  3. TYSABRI [Suspect]
     Indication: MULTIPLE SCLEROSIS
     Route: 042
     Dates: start: 20110301

REACTIONS (8)
  - URINARY TRACT INFECTION [None]
  - CATARACT [None]
  - BALANCE DISORDER [None]
  - BLINDNESS UNILATERAL [None]
  - URINE ODOUR ABNORMAL [None]
  - VISION BLURRED [None]
  - DRY MOUTH [None]
  - FALL [None]
